FAERS Safety Report 25439286 (Version 1)
Quarter: 2025Q2

REPORT INFORMATION
  Report Type: Spontaneous
  Country: US (occurrence: None)
  Receive Date: 20250612
  Receipt Date: 20250612
  Transmission Date: 20250717
  Serious: Yes (Other)
  Sender: FDA-CTU
  Company Number: None

PATIENT
  Age: 26 Year
  Sex: Female
  Weight: 56.25 kg

DRUGS (2)
  1. QELBREE [Suspect]
     Active Substance: VILOXAZINE HYDROCHLORIDE
     Route: 048
  2. Desvenlafaxine 50mg Vitamin D3 2,000 IU [Concomitant]

REACTIONS (13)
  - Dyspnoea [None]
  - Chest pain [None]
  - Heart rate increased [None]
  - Cold sweat [None]
  - Hot flush [None]
  - Vomiting [None]
  - Somnolence [None]
  - Nausea [None]
  - Withdrawal syndrome [None]
  - Head discomfort [None]
  - Dysstasia [None]
  - Gait inability [None]
  - Product label issue [None]

NARRATIVE: CASE EVENT DATE: 20250612
